FAERS Safety Report 8495059-9 (Version None)
Quarter: 2012Q3

REPORT INFORMATION
  Report Type: 
  Country: None (occurrence: None)
  Receive Date: 20120709
  Receipt Date: 20120705
  Transmission Date: 20120928
  Serious: Yes (Hospitalization, Other)
  Sender: FDA-Public Use
  Company Number: PHHY2012NL057562

PATIENT
  Age: 41 Year
  Sex: Male

DRUGS (2)
  1. AMIODARONE HCL [Interacting]
     Indication: VENTRICULAR FIBRILLATION
     Dosage: 300 MG, DAILY
     Route: 042
  2. CARBAMAZEPINE [Suspect]
     Indication: EPILEPSY
     Dosage: 400 MG, 5QD

REACTIONS (5)
  - COMA [None]
  - ANTICONVULSANT DRUG LEVEL INCREASED [None]
  - OVERDOSE [None]
  - DRUG INTERACTION [None]
  - TOXICITY TO VARIOUS AGENTS [None]
